FAERS Safety Report 21859582 (Version 2)
Quarter: 2023Q1

REPORT INFORMATION
  Report Type: Report from Study
  Country: GR (occurrence: GR)
  Receive Date: 20230113
  Receipt Date: 20230220
  Transmission Date: 20230417
  Serious: Yes (Hospitalization, Other)
  Sender: FDA-Public Use
  Company Number: GR-ABBVIE-4252382

PATIENT
  Age: 57 Year
  Sex: Female
  Weight: 50 kg

DRUGS (11)
  1. CARBIDOPA\LEVODOPA [Suspect]
     Active Substance: CARBIDOPA\LEVODOPA
     Indication: Parkinson^s disease
     Dosage: MORNING DOSE: 0ML; CONTINUOUS RATE: 4.4ML/H; EXTRA DOSE: 5.0ML (24HRS ADMINISTRATION)
     Route: 050
     Dates: start: 20200722
  2. CARBIDOPA\LEVODOPA [Suspect]
     Active Substance: CARBIDOPA\LEVODOPA
     Dosage: MORNING DOSE: 0ML; CONTINUOUS RATE: 4.6ML/H; EXTRA DOSE: 3.0ML (24HRS ADMINISTRATION)
     Route: 050
     Dates: end: 20230105
  3. CARBIDOPA\LEVODOPA [Suspect]
     Active Substance: CARBIDOPA\LEVODOPA
     Dosage: MORNING DOSE: 0ML; CONTINUOUS RATE: 4.4ML/H; EXTRA DOSE: 5.0ML (24HRS ADMINISTRATION)
     Route: 050
  4. EXELON [Concomitant]
     Active Substance: RIVASTIGMINE TARTRATE
     Indication: Product used for unknown indication
     Dosage: 13.3MG
     Route: 062
  5. QUETIAPINE [Concomitant]
     Active Substance: QUETIAPINE
     Indication: Product used for unknown indication
     Route: 048
  6. CYMBALTA [Concomitant]
     Active Substance: DULOXETINE HYDROCHLORIDE
     Indication: Product used for unknown indication
     Route: 048
  7. ENOXAPARIN SODIUM [Concomitant]
     Active Substance: ENOXAPARIN SODIUM
     Indication: Product used for unknown indication
     Dosage: 0.4MG
     Route: 048
  8. DOMPERIDONE [Concomitant]
     Active Substance: DOMPERIDONE
     Indication: Product used for unknown indication
     Dosage: TIME INTERVAL: 0.33333333 DAYS
     Route: 048
  9. NEXIUM [Concomitant]
     Active Substance: ESOMEPRAZOLE MAGNESIUM
     Indication: Product used for unknown indication
     Route: 048
  10. LYRICA [Concomitant]
     Active Substance: PREGABALIN
     Indication: Product used for unknown indication
     Route: 048
  11. CLONAZEPAM [Concomitant]
     Active Substance: CLONAZEPAM
     Indication: Product used for unknown indication
     Route: 048

REACTIONS (12)
  - Device occlusion [Recovered/Resolved]
  - Dementia [Not Recovered/Not Resolved]
  - Device issue [Not Recovered/Not Resolved]
  - Medication error [Recovered/Resolved]
  - Speech disorder [Not Recovered/Not Resolved]
  - Food refusal [Not Recovered/Not Resolved]
  - Dysphagia [Not Recovered/Not Resolved]
  - Unevaluable event [Not Recovered/Not Resolved]
  - Embedded device [Recovered/Resolved]
  - Confusional state [Not Recovered/Not Resolved]
  - Weight decreased [Not Recovered/Not Resolved]
  - Device use error [Unknown]

NARRATIVE: CASE EVENT DATE: 20230105
